FAERS Safety Report 16412147 (Version 1)
Quarter: 2019Q2

REPORT INFORMATION
  Report Type: Spontaneous
  Country: US (occurrence: US)
  Receive Date: 20190610
  Receipt Date: 20190610
  Transmission Date: 20190711
  Serious: Yes (Other)
  Sender: FDA-Public Use
  Company Number: US-ELI_LILLY_AND_COMPANY-US201905012853

PATIENT
  Sex: Female

DRUGS (1)
  1. CYMBALTA [Suspect]
     Active Substance: DULOXETINE HYDROCHLORIDE
     Indication: FIBROMYALGIA
     Dosage: 60 MG, UNKNOWN
     Route: 065
     Dates: start: 2007, end: 2013

REACTIONS (12)
  - Diarrhoea [Unknown]
  - Balance disorder [Not Recovered/Not Resolved]
  - Headache [Unknown]
  - Vomiting [Unknown]
  - Dizziness [Unknown]
  - Irritability [Unknown]
  - Seizure [Unknown]
  - Sensory disturbance [Unknown]
  - Insomnia [Unknown]
  - Drug withdrawal syndrome [Unknown]
  - Emotional distress [Not Recovered/Not Resolved]
  - Nausea [Unknown]

NARRATIVE: CASE EVENT DATE: 2013
